FAERS Safety Report 20901512 (Version 1)
Quarter: 2022Q2

REPORT INFORMATION
  Report Type: Spontaneous
  Country: None (occurrence: US)
  Receive Date: 20220601
  Receipt Date: 20220601
  Transmission Date: 20220721
  Serious: No
  Sender: FDA-Public Use
  Company Number: US-Mikart, LLC-2129367

PATIENT
  Age: 62 Year
  Sex: Female

DRUGS (4)
  1. CHLORZOXAZONE [Suspect]
     Active Substance: CHLORZOXAZONE
     Indication: Back disorder
     Route: 048
  2. NORCO [Concomitant]
     Active Substance: ACETAMINOPHEN\HYDROCODONE BITARTRATE
  3. LYRICA [Concomitant]
     Active Substance: PREGABALIN
  4. unspecified diabetes medication [Concomitant]

REACTIONS (2)
  - Drug ineffective [Unknown]
  - Somnolence [Unknown]

NARRATIVE: CASE EVENT DATE: 20220426
